FAERS Safety Report 12066880 (Version 1)
Quarter: 2016Q1

REPORT INFORMATION
  Report Type: Spontaneous
  Country: US (occurrence: US)
  Receive Date: 20160211
  Receipt Date: 20160211
  Transmission Date: 20160526
  Serious: No
  Sender: FDA-Public Use
  Company Number: US-ASTRAZENECA-2016SE11019

PATIENT
  Sex: Female

DRUGS (3)
  1. SALINE ORAL OTC [Concomitant]
     Active Substance: SODIUM CHLORIDE
     Route: 045
  2. XYLITOL [Concomitant]
     Active Substance: XYLITOL
  3. RHINOCORT AQUA [Suspect]
     Active Substance: BUDESONIDE
     Route: 045

REACTIONS (6)
  - Feeling abnormal [Unknown]
  - Visual impairment [Unknown]
  - House dust allergy [Unknown]
  - Intentional product misuse [Unknown]
  - Ear disorder [Unknown]
  - Drug dose omission [Unknown]
